FAERS Safety Report 8642141 (Version 5)
Quarter: 2013Q1

REPORT INFORMATION
  Report Type: Report from Study
  Country: DE (occurrence: DE)
  Receive Date: 20120628
  Receipt Date: 20130305
  Transmission Date: 20140127
  Serious: Yes (Death, Hospitalization)
  Sender: FDA-Public Use
  Company Number: DE-CELGENEUS-062-CCAZA-12050273

PATIENT
  Age: 79 Year
  Sex: Male
  Weight: 73 kg

DRUGS (39)
  1. AZACITIDINE INJECTABLE [Suspect]
     Indication: ACUTE MYELOID LEUKAEMIA
     Dosage: 75 MILLIGRAM/SQ. METER
     Route: 058
     Dates: start: 20120425, end: 20120501
  2. AZACITIDINE INJECTABLE [Suspect]
     Dosage: 75 MILLIGRAM
     Route: 058
     Dates: end: 20120608
  3. AGGRENOX [Concomitant]
     Indication: PROPHYLAXIS
     Dosage: 450 MILLIGRAM
     Route: 048
     Dates: end: 20120502
  4. ALLOPURINOL [Concomitant]
     Indication: HYPERURICAEMIA
     Dosage: 100 MILLIGRAM
     Route: 048
     Dates: start: 20120404
  5. ALLOPURINOL [Concomitant]
     Dosage: 100 MILLIGRAM
     Route: 048
     Dates: start: 20120404, end: 20120603
  6. AMLODIPINE [Concomitant]
     Indication: HYPERTENSION
     Dosage: 10 MILLIGRAM
     Route: 048
     Dates: start: 199904, end: 20120403
  7. AMLODIPINE [Concomitant]
     Dosage: 5 MILLIGRAM
     Route: 048
     Dates: start: 199904, end: 20120403
  8. AMLODIPINE [Concomitant]
     Dosage: 2.5 MILLIGRAM
     Route: 048
     Dates: start: 20120507, end: 20120509
  9. AMLODIPINE [Concomitant]
     Dosage: 5 MILLIGRAM
     Route: 048
     Dates: start: 20120510, end: 20120512
  10. AMLODIPINE [Concomitant]
     Dosage: 10 MILLIGRAM
     Route: 048
     Dates: start: 20120513, end: 20120515
  11. AMLODIPINE [Concomitant]
     Dosage: 5 MILLIGRAM
     Route: 048
     Dates: start: 20120516, end: 20120612
  12. CITALOPRAM [Concomitant]
     Indication: DEPRESSION
     Dosage: 20 MILLIGRAM
     Route: 048
     Dates: start: 201005, end: 20120612
  13. METOPROLOL [Concomitant]
     Indication: HYPERTENSION
     Dosage: 47.5 MILLIGRAM
     Route: 048
     Dates: start: 200907, end: 20120403
  14. METOPROLOL [Concomitant]
     Indication: ATRIAL FIBRILLATION
     Dosage: 23.75 MILLIGRAM
     Route: 048
     Dates: start: 20120404, end: 20120502
  15. METOPROLOL [Concomitant]
     Dosage: 5 MILLIGRAM
     Route: 041
     Dates: start: 20120611, end: 20120611
  16. METOPROLOL [Concomitant]
     Dosage: 47.5-23.75 MG
     Route: 048
     Dates: start: 20120503, end: 20120607
  17. METOPROLOL [Concomitant]
     Dosage: 95-23.75 MG
     Route: 048
     Dates: start: 20120608, end: 20120609
  18. METOPROLOL [Concomitant]
     Dosage: 95-23.75 MG
     Route: 048
     Dates: start: 20120610, end: 20120612
  19. PANTOZOL [Concomitant]
     Indication: NAUSEA
     Dosage: 40 MILLIGRAM
     Route: 048
     Dates: start: 20120430, end: 20120612
  20. PANTOZOL [Concomitant]
     Indication: PROPHYLAXIS
  21. PARACODIN [Concomitant]
     Indication: COUGH
     Dosage: 20 DROPS
     Route: 048
     Dates: start: 20120501, end: 20120501
  22. POTASSIUM CHLORIDE [Concomitant]
     Indication: PROPHYLAXIS
     Dosage: 40MVAL
     Route: 041
     Dates: start: 20120502, end: 20120502
  23. POTASSIUM CHLORIDE [Concomitant]
     Indication: RENAL FAILURE
     Dosage: 1 TABLET
     Route: 048
     Dates: start: 20120503, end: 20120503
  24. POTASSIUM CHLORIDE [Concomitant]
     Indication: PROPHYLAXIS
     Dosage: 1 TABLET
     Route: 048
     Dates: start: 20120504, end: 20120505
  25. POTASSIUM CHLORIDE [Concomitant]
     Dosage: 1 TABLET
     Route: 048
     Dates: start: 20120506, end: 20120515
  26. SIMVASTATIN [Concomitant]
     Indication: HYPERCHOLESTEROLAEMIA
     Dosage: 40 MILLIGRAM
     Route: 048
     Dates: start: 200909, end: 20120502
  27. TAMSULOSIN [Concomitant]
     Indication: BENIGN PROSTATIC HYPERPLASIA
     Dosage: .4 MILLIGRAM
     Route: 048
     Dates: start: 200708, end: 20120612
  28. VALSARTAN [Concomitant]
     Indication: HYPERTENSION
     Dosage: 172.5 MILLIGRAM
     Route: 048
  29. VALSARTAN [Concomitant]
     Dosage: 160 MILLIGRAM
     Route: 048
     Dates: start: 199903, end: 20120429
  30. HUMAN INSULIN [Concomitant]
     Indication: DIABETES MELLITUS
     Route: 058
     Dates: start: 20120503, end: 20120612
  31. CIPROFLOXACIN [Concomitant]
     Indication: INFECTION PROPHYLAXIS
     Dosage: 1000 MILLIGRAM
     Route: 048
     Dates: start: 20120516, end: 20120612
  32. AMPHOTERICIN B [Concomitant]
     Indication: PROPHYLAXIS
     Dosage: 4 MILLILITER
     Route: 048
     Dates: start: 20120516, end: 20120612
  33. PHYTOMENADIONE [Concomitant]
     Indication: THROMBOCYTOPENIA
     Dosage: 40 MILLIGRAM
     Route: 048
     Dates: start: 20120603, end: 20120612
  34. BISACODYL [Concomitant]
     Indication: CONSTIPATION
     Dosage: 10 DROPS
     Route: 048
     Dates: start: 20120504, end: 20120504
  35. KALINOR [Concomitant]
     Indication: RENAL FAILURE
     Dosage: 1 TABLET
     Route: 048
     Dates: start: 20120503, end: 20120503
  36. KALINOR [Concomitant]
     Dosage: 1 TABLET
     Route: 048
     Dates: start: 20120504, end: 20120505
  37. KALINOR [Concomitant]
     Dosage: 1 TABLET
     Route: 048
     Dates: start: 20120506, end: 20120515
  38. SODIUM CHLORIDE [Concomitant]
     Indication: RENAL FAILURE
     Dosage: 1000 MILLILITER
     Route: 041
     Dates: start: 20120430, end: 20120515
  39. SODIUM CHLORIDE [Concomitant]
     Indication: DIZZINESS

REACTIONS (3)
  - Thrombotic thrombocytopenic purpura [Not Recovered/Not Resolved]
  - Pneumonia [Recovered/Resolved]
  - Acute myeloid leukaemia [Fatal]
